FAERS Safety Report 9849081 (Version 1)
Quarter: 2014Q1

REPORT INFORMATION
  Report Type: Spontaneous
  Country: US (occurrence: None)
  Receive Date: 20140124
  Receipt Date: 20140124
  Transmission Date: 20141002
  Serious: Yes (Life-Threatening, Hospitalization, Disabling)
  Sender: FDA-Public Use
  Company Number: None

PATIENT
  Age: 44 Year
  Sex: Female
  Weight: 77.2 kg

DRUGS (9)
  1. AVASTIN [Suspect]
     Indication: OVARIAN CANCER METASTATIC
     Dosage: 15 MG/KG (1200 MG) EVERY 21 DAYS IV INFUSION
     Route: 042
     Dates: start: 20130206, end: 20131016
  2. COMPAZINE [Concomitant]
  3. PRILOSEC [Concomitant]
  4. VICODIN [Concomitant]
  5. FOLIC ACID [Concomitant]
  6. VITAMIN D [Concomitant]
  7. METOPROLOL [Concomitant]
  8. GLIPIZIDE [Concomitant]
  9. ALEVE [Concomitant]

REACTIONS (3)
  - Headache [None]
  - Cerebral haemorrhage [None]
  - VIIth nerve paralysis [None]
